FAERS Safety Report 5311487-4 (Version None)
Quarter: 2007Q2

REPORT INFORMATION
  Report Type: 
  Country: None (occurrence: None)
  Receive Date: 20070426
  Receipt Date: 20070426
  Transmission Date: 20071010
  Serious: Yes (Life-Threatening, Hospitalization, Other)
  Sender: FDA-Public Use
  Company Number: None

PATIENT
  Age: 43 Year
  Sex: Female
  Weight: 68.0396 kg

DRUGS (3)
  1. LAMICTAL [Suspect]
     Indication: ANXIETY
     Dosage: 25 MG DAILY ORAL
     Route: 048
     Dates: start: 20070319, end: 20070329
  2. LAMICTAL [Suspect]
     Indication: MOOD SWINGS
     Dosage: 25 MG DAILY ORAL
     Route: 048
     Dates: start: 20070319, end: 20070329
  3. PEXEVA [Concomitant]

REACTIONS (7)
  - ASTHENIA [None]
  - DRUG HYPERSENSITIVITY [None]
  - HAEMORRHOIDAL HAEMORRHAGE [None]
  - IMPAIRED WORK ABILITY [None]
  - PHARYNGITIS STREPTOCOCCAL [None]
  - SCARLET FEVER [None]
  - STEVENS-JOHNSON SYNDROME [None]
